FAERS Safety Report 21725798 (Version 1)
Quarter: 2022Q4

REPORT INFORMATION
  Report Type: Report from Study
  Country: US (occurrence: US)
  Receive Date: 20221214
  Receipt Date: 20221214
  Transmission Date: 20230112
  Serious: Yes (Death, Life-Threatening, Other)
  Sender: FDA-Public Use
  Company Number: US-SUN PHARMACEUTICAL INDUSTRIES LTD-2022R1-368468

PATIENT
  Age: 77 Year
  Sex: Female

DRUGS (3)
  1. OLANZAPINE [Suspect]
     Active Substance: OLANZAPINE
     Indication: Product used for unknown indication
     Dosage: UNK
     Route: 065
  2. QUETIAPINE [Suspect]
     Active Substance: QUETIAPINE
     Indication: Product used for unknown indication
     Dosage: UNK
     Route: 065
  3. HALOPERIDOL [Suspect]
     Active Substance: HALOPERIDOL
     Indication: Product used for unknown indication
     Dosage: UNK
     Route: 065

REACTIONS (16)
  - Toxicity to various agents [Fatal]
  - Acute kidney injury [Unknown]
  - Neuroleptic malignant syndrome [Unknown]
  - Hyperthermia [Unknown]
  - Arrhythmia [Unknown]
  - Myocardial injury [Unknown]
  - Respiratory depression [Unknown]
  - Agitation [Unknown]
  - Depressed level of consciousness [Unknown]
  - Delirium [Unknown]
  - Hallucination [Unknown]
  - Tremor [Unknown]
  - Hyperreflexia [Unknown]
  - Clonus [Unknown]
  - Myocardial ischaemia [Unknown]
  - Rhabdomyolysis [Unknown]
